FAERS Safety Report 5912878-0 (Version None)
Quarter: 2008Q4

REPORT INFORMATION
  Report Type: 
  Country: None (occurrence: None)
  Receive Date: 20081008
  Receipt Date: 20081003
  Transmission Date: 20090506
  Serious: Yes (Other)
  Sender: FDA-Public Use
  Company Number: FR-MERCK-0810FRA00013

PATIENT
  Age: 85 Year
  Sex: Female

DRUGS (4)
  1. HYZAAR [Suspect]
     Indication: HYPERTENSION
     Route: 048
     Dates: start: 20070101, end: 20080825
  2. FENOFIBRATE [Concomitant]
     Indication: HYPERCHOLESTEROLAEMIA
     Route: 048
  3. PRAZEPAM [Concomitant]
     Route: 048
  4. ASPIRIN LYSINE [Concomitant]
     Route: 048

REACTIONS (2)
  - ANURIA [None]
  - RENAL FAILURE [None]
